FAERS Safety Report 7877650-3 (Version None)
Quarter: 2011Q4

REPORT INFORMATION
  Report Type: 
  Country: None (occurrence: None)
  Receive Date: 20111031
  Receipt Date: 20111031
  Transmission Date: 20120403
  Serious: Yes (Life-Threatening, Other)
  Sender: FDA-Public Use
  Company Number: None

PATIENT
  Age: 16 Year
  Sex: Male
  Weight: 58.967 kg

DRUGS (1)
  1. MAXAIR [Suspect]

REACTIONS (2)
  - DEVICE BREAKAGE [None]
  - DEVICE MALFUNCTION [None]
